FAERS Safety Report 9307795 (Version 1)
Quarter: 2013Q2

REPORT INFORMATION
  Report Type: Spontaneous
  Country: US (occurrence: US)
  Receive Date: 20130524
  Receipt Date: 20130524
  Transmission Date: 20140414
  Serious: Yes (Other)
  Sender: FDA-Public Use
  Company Number: US-PFIZER INC-2013155874

PATIENT
  Age: 71 Year
  Sex: Female

DRUGS (1)
  1. DETROL LA [Suspect]
     Dosage: 2 MG, UNK

REACTIONS (2)
  - Systemic lupus erythematosus rash [Unknown]
  - Rash [Unknown]
